FAERS Safety Report 22528010 (Version 1)
Quarter: 2023Q2

REPORT INFORMATION
  Report Type: Spontaneous
  Country: US (occurrence: US)
  Receive Date: 20230606
  Receipt Date: 20230606
  Transmission Date: 20230721
  Serious: No
  Sender: FDA-Public Use
  Company Number: US-AMGEN-USASP2023096135

PATIENT
  Age: 67 Year
  Sex: Female

DRUGS (1)
  1. EVENITY [Suspect]
     Active Substance: ROMOSOZUMAB-AQQG
     Indication: Osteoporosis
     Dosage: UNK
     Route: 065
     Dates: start: 202205, end: 202303

REACTIONS (11)
  - Erythema [Recovered/Resolved]
  - Blister [Recovered/Resolved]
  - Inflammation [Recovered/Resolved]
  - Joint swelling [Recovered/Resolved]
  - Pain in extremity [Recovered/Resolved]
  - Muscular weakness [Recovered/Resolved]
  - Brain fog [Recovered/Resolved]
  - Paraesthesia [Recovered/Resolved]
  - Infection [Recovered/Resolved]
  - Mouth ulceration [Recovered/Resolved]
  - Antinuclear antibody increased [Recovered/Resolved]

NARRATIVE: CASE EVENT DATE: 20221201
